FAERS Safety Report 16552739 (Version 2)
Quarter: 2019Q3

REPORT INFORMATION
  Report Type: Report from Study
  Country: None (occurrence: BR)
  Receive Date: 20190710
  Receipt Date: 20190923
  Transmission Date: 20191004
  Serious: Yes (Hospitalization, Other)
  Sender: FDA-Public Use
  Company Number: BR-ABBVIE-19K-020-2752094-00

PATIENT
  Sex: Male
  Weight: 79 kg

DRUGS (1)
  1. HUMIRA [Suspect]
     Active Substance: ADALIMUMAB
     Indication: ANKYLOSING SPONDYLITIS
     Route: 058
     Dates: start: 20140524, end: 201903

REACTIONS (6)
  - Weight decreased [Unknown]
  - Inguinal hernia [Recovered/Resolved]
  - Cholelithiasis [Recovered/Resolved]
  - Gamma-glutamyltransferase abnormal [Unknown]
  - Liver disorder [Unknown]
  - Sacroiliitis [Unknown]

NARRATIVE: CASE EVENT DATE: 2019
